FAERS Safety Report 16655588 (Version 2)
Quarter: 2019Q3

REPORT INFORMATION
  Report Type: Report from Study
  Country: US (occurrence: US)
  Receive Date: 20190801
  Receipt Date: 20190807
  Transmission Date: 20191004
  Serious: Yes (Death, Other)
  Sender: FDA-Public Use
  Company Number: US-REGENERON PHARMACEUTICALS, INC.-2019-44255

PATIENT

DRUGS (2)
  1. EYLEA [Suspect]
     Active Substance: AFLIBERCEPT
     Indication: HISTOPLASMOSIS
     Dosage: 2 MG, INTO THE RIGHT EYE, EVERY 9 WEEKS, LAST DOSE
     Route: 031
     Dates: start: 20190603, end: 20190603
  2. EYLEA [Suspect]
     Active Substance: AFLIBERCEPT
     Indication: RETINAL NEOVASCULARISATION
     Dosage: 2 MG, INTO THE RIGHT EYE, EVERY 9 WEEKS
     Route: 031
     Dates: start: 20170227, end: 20190603

REACTIONS (2)
  - Death [Fatal]
  - Off label use [Unknown]

NARRATIVE: CASE EVENT DATE: 20190629
